FAERS Safety Report 4430589-8 (Version None)
Quarter: 2004Q3

REPORT INFORMATION
  Report Type: 
  Country: None (occurrence: None)
  Receive Date: 20040819
  Receipt Date: 20040819
  Transmission Date: 20050211
  Serious: Yes (Life-Threatening, Hospitalization)
  Sender: FDA-Public Use
  Company Number: None

PATIENT
  Age: 75 Year
  Sex: Male
  Weight: 83 kg

DRUGS (8)
  1. FENTANYL [Suspect]
     Indication: SEDATION
     Dosage: 50 MEQ IV X 1
     Route: 042
     Dates: start: 20040603
  2. ALBUTEROL [Concomitant]
  3. ZESTORETIC [Concomitant]
  4. ATENOLOL [Concomitant]
  5. PRAVACHOL [Concomitant]
  6. PRILOSEC [Concomitant]
  7. FLOMAX [Concomitant]
  8. ALLOPURINOL [Concomitant]

REACTIONS (5)
  - HYPERTENSION [None]
  - HYPOTENSION [None]
  - RESPIRATORY ARREST [None]
  - RESPIRATORY FAILURE [None]
  - SHOCK [None]
